FAERS Safety Report 19995612 (Version 7)
Quarter: 2022Q1

REPORT INFORMATION
  Report Type: Spontaneous
  Country: JP (occurrence: JP)
  Receive Date: 20211025
  Receipt Date: 20220328
  Transmission Date: 20220423
  Serious: Yes (Hospitalization, Other)
  Sender: FDA-Public Use
  Company Number: JP-BRISTOL-MYERS SQUIBB COMPANY-BMS-2021-032489

PATIENT
  Age: 54 Year
  Sex: Male
  Weight: 67.7 kg

DRUGS (2)
  1. OPDIVO [Suspect]
     Active Substance: NIVOLUMAB
     Indication: Metastatic renal cell carcinoma
     Dosage: 240 MILLIGRAM
     Route: 041
     Dates: start: 20210126, end: 20210309
  2. YERVOY [Suspect]
     Active Substance: IPILIMUMAB
     Indication: Metastatic renal cell carcinoma
     Dosage: 70 MILLIGRAM
     Route: 041
     Dates: start: 20210126, end: 20210309

REACTIONS (12)
  - Immune-mediated myositis [Recovered/Resolved]
  - Drug eruption [Recovered/Resolved]
  - Psoriasis [Recovered/Resolved]
  - Arthritis [Recovered/Resolved]
  - Dermatitis psoriasiform [Recovered/Resolved]
  - Sarcoidosis [Unknown]
  - Type 2 diabetes mellitus [Unknown]
  - Hypothyroidism [Unknown]
  - Autoimmune thyroiditis [Unknown]
  - Paronychia [Recovering/Resolving]
  - Insomnia [Unknown]
  - Thyroiditis [Unknown]

NARRATIVE: CASE EVENT DATE: 20210322
